FAERS Safety Report 10048301 (Version 2)
Quarter: 2014Q2

REPORT INFORMATION
  Report Type: Spontaneous
  Country: US (occurrence: US)
  Receive Date: 20140331
  Receipt Date: 20140522
  Transmission Date: 20141212
  Serious: Yes (Hospitalization)
  Sender: FDA-Public Use
  Company Number: US-GLAXOSMITHKLINE-A1031527A

PATIENT
  Sex: Female
  Weight: 82.3 kg

DRUGS (1)
  1. AVANDIA [Suspect]
     Indication: DIABETES MELLITUS
     Route: 048
     Dates: start: 20040810, end: 200705

REACTIONS (3)
  - Angina unstable [Unknown]
  - Cerebrovascular accident [Unknown]
  - Injury [Unknown]
